FAERS Safety Report 24685926 (Version 1)
Quarter: 2024Q4

REPORT INFORMATION
  Report Type: Spontaneous
  Country: US (occurrence: None)
  Receive Date: 20241127
  Receipt Date: 20241127
  Transmission Date: 20250114
  Serious: Yes (Life-Threatening, Other)
  Sender: Public
  Company Number: None

PATIENT
  Age: 53 Year
  Sex: Female
  Weight: 72.9 kg

DRUGS (2)
  1. KETAMINE [Suspect]
     Active Substance: KETAMINE
     Indication: Pain
     Dosage: OTHER QUANTITY : 60 TROCHE;?FREQUENCY : TWICE A DAY;?OTHER ROUTE : BUCCAL CAVITY;?
     Route: 002
     Dates: start: 20241008, end: 20241111
  2. BUPRENORPHINE [Suspect]
     Active Substance: BUPRENORPHINE

REACTIONS (7)
  - Product communication issue [None]
  - Heart rate increased [None]
  - Blood pressure measurement [None]
  - Somnolence [None]
  - Loss of consciousness [None]
  - Respiratory depression [None]
  - Fatigue [None]

NARRATIVE: CASE EVENT DATE: 20241009
